FAERS Safety Report 23307866 (Version 2)
Quarter: 2023Q4

REPORT INFORMATION
  Report Type: Spontaneous
  Country: IL (occurrence: IL)
  Receive Date: 20231218
  Receipt Date: 20231228
  Transmission Date: 20240109
  Serious: Yes (Disabling)
  Sender: FDA-Public Use
  Company Number: IL-002147023-NVSC2023IL262017

PATIENT
  Sex: Female

DRUGS (2)
  1. ERELZI [Suspect]
     Active Substance: ETANERCEPT-SZZS
     Indication: Arthritis
     Dosage: UNK
     Route: 065
  2. ERELZI [Suspect]
     Active Substance: ETANERCEPT-SZZS
     Indication: Arthritis
     Dosage: 50 MG, QW (STARTED MANY YEARS AGO ATLEAST 10)
     Route: 065

REACTIONS (4)
  - General physical health deterioration [Recovered/Resolved]
  - Pain [Recovered/Resolved]
  - Wrong technique in device usage process [Recovered/Resolved]
  - Product dispensing error [Unknown]
